FAERS Safety Report 17090866 (Version 1)
Quarter: 2019Q4

REPORT INFORMATION
  Report Type: Spontaneous
  Country: US (occurrence: US)
  Receive Date: 20191129
  Receipt Date: 20191129
  Transmission Date: 20200122
  Serious: No
  Sender: FDA-Public Use
  Company Number: US-BIOGEN-2019BI00790897

PATIENT
  Sex: Male

DRUGS (1)
  1. TYSABRI [Suspect]
     Active Substance: NATALIZUMAB
     Indication: MULTIPLE SCLEROSIS
     Route: 065
     Dates: start: 20111108

REACTIONS (7)
  - Rash pruritic [Unknown]
  - Hypoaesthesia [Unknown]
  - Asthenia [Unknown]
  - Weight decreased [Unknown]
  - Muscle tightness [Unknown]
  - Tooth loss [Unknown]
  - Flushing [Unknown]
